FAERS Safety Report 12332885 (Version 1)
Quarter: 2016Q2

REPORT INFORMATION
  Report Type: Spontaneous
  Country: US (occurrence: US)
  Receive Date: 20160504
  Receipt Date: 20160504
  Transmission Date: 20160815
  Serious: No
  Sender: FDA-Public Use
  Company Number: US-ROCHE-1677857

PATIENT
  Age: 65 Year
  Sex: Male
  Weight: 81.72 kg

DRUGS (1)
  1. ESBRIET [Suspect]
     Active Substance: PIRFENIDONE
     Indication: IDIOPATHIC PULMONARY FIBROSIS
     Dosage: 2403 MG DAILY, 3 CAPS PO TID
     Route: 048
     Dates: start: 20150423

REACTIONS (2)
  - Gastrooesophageal reflux disease [Recovered/Resolved]
  - Gastric disorder [Unknown]

NARRATIVE: CASE EVENT DATE: 201507
